FAERS Safety Report 20684485 (Version 1)
Quarter: 2022Q2

REPORT INFORMATION
  Report Type: Report from Study
  Country: FR (occurrence: FR)
  Receive Date: 20220407
  Receipt Date: 20220407
  Transmission Date: 20220721
  Serious: Yes (Hospitalization)
  Sender: FDA-Public Use
  Company Number: FR-SERVIER-S21010363

PATIENT

DRUGS (9)
  1. PEGASPARGASE [Suspect]
     Active Substance: PEGASPARGASE
     Indication: Acute lymphocytic leukaemia
     Dosage: 3200 IU (D15)
     Route: 042
     Dates: start: 20190315, end: 20190315
  2. PEGASPARGASE [Suspect]
     Active Substance: PEGASPARGASE
     Dosage: 1680 IU (D43)
     Route: 042
     Dates: start: 20190411, end: 20190411
  3. TN UNSPECIFIED [Concomitant]
     Indication: Acute lymphocytic leukaemia
     Dosage: 77 MG, D1 TO D14, D29 TO D42
     Route: 048
     Dates: start: 20190315, end: 20190503
  4. TN UNSPECIFIED [Concomitant]
     Indication: Acute lymphocytic leukaemia
     Dosage: 1.3 G, D1, D29
     Route: 042
     Dates: start: 20190315, end: 20190503
  5. TN UNSPECIFIED [Concomitant]
     Indication: Acute lymphocytic leukaemia
     Dosage: 1.9 MG, D15, D22, D43
     Route: 042
     Dates: start: 20190315, end: 20190503
  6. TN UNSPECIFIED [Concomitant]
     Indication: Acute lymphocytic leukaemia
     Dosage: 96 MG, D3 TO D6, D10 TO D13, D31 TO D34, D38 TO D41
     Route: 042
     Dates: start: 20190315, end: 20190505
  7. TN UNSPECIFIED [Concomitant]
     Dosage: 30 MG ON D3, D31
     Route: 037
     Dates: start: 20190315, end: 20190505
  8. TN UNSPECIFIED [Concomitant]
     Indication: Acute lymphocytic leukaemia
     Dosage: 32 MG, ON D3, D31
     Route: 037
     Dates: start: 20190315, end: 20190505
  9. TN UNSPECIFIED [Concomitant]
     Indication: Acute lymphocytic leukaemia
     Dosage: 15 MG ON D3, D31
     Route: 037
     Dates: start: 20190315, end: 20190505

REACTIONS (1)
  - Respiratory moniliasis [Recovered/Resolved]

NARRATIVE: CASE EVENT DATE: 20190516
